FAERS Safety Report 14675260 (Version 1)
Quarter: 2018Q1

REPORT INFORMATION
  Report Type: Spontaneous
  Country: KZ (occurrence: KZ)
  Receive Date: 20180323
  Receipt Date: 20180323
  Transmission Date: 20180509
  Serious: Yes (Death)
  Sender: FDA-Public Use
  Company Number: KZ-ASTRAZENECA-2018SE33906

PATIENT
  Sex: Male
  Weight: 76 kg

DRUGS (4)
  1. BRILINTA [Suspect]
     Active Substance: TICAGRELOR
     Route: 048
  2. BRILINTA [Suspect]
     Active Substance: TICAGRELOR
     Route: 048
  3. THROMBIN [Concomitant]
     Active Substance: THROMBIN
  4. VASAR [Concomitant]

REACTIONS (2)
  - Haemorrhagic stroke [Fatal]
  - Hepatic echinococciasis [Unknown]
